FAERS Safety Report 10939647 (Version 2)
Quarter: 2015Q2

REPORT INFORMATION
  Report Type: Spontaneous
  Country: US (occurrence: US)
  Receive Date: 20150322
  Receipt Date: 20150525
  Transmission Date: 20150821
  Serious: No
  Sender: FDA-Public Use
  Company Number: US-JNJFOC-20140904397

PATIENT
  Sex: Male

DRUGS (2)
  1. RISPERDAL [Suspect]
     Active Substance: RISPERIDONE
     Indication: PRODUCT USED FOR UNKNOWN INDICATION
     Route: 065
  2. HYDROCHLOROTHIAZIDE. [Suspect]
     Active Substance: HYDROCHLOROTHIAZIDE
     Indication: PRODUCT USED FOR UNKNOWN INDICATION
     Route: 065

REACTIONS (10)
  - Rash [Unknown]
  - Dizziness [Unknown]
  - Chest discomfort [Unknown]
  - Mood altered [Unknown]
  - Depressed mood [Unknown]
  - Dyspnoea [Unknown]
  - Blood glucose increased [Unknown]
  - Confusional state [Unknown]
  - Thinking abnormal [Unknown]
  - Disturbance in attention [Unknown]
